FAERS Safety Report 5412690-5 (Version None)
Quarter: 2007Q3

REPORT INFORMATION
  Report Type: 
  Country: None (occurrence: None)
  Receive Date: 20070813
  Receipt Date: 20070807
  Transmission Date: 20080115
  Serious: Yes (Death, Life-Threatening, Hospitalization)
  Sender: FDA-Public Use
  Company Number: US-SHR-US-2006-023757

PATIENT
  Age: 76 Year
  Sex: Male

DRUGS (47)
  1. CAMPATH [Suspect]
     Indication: CHRONIC LYMPHOCYTIC LEUKAEMIA
     Dosage: 30 MG, 1X/DAY
     Route: 058
     Dates: start: 20060313, end: 20060317
  2. CAMPATH [Suspect]
     Dosage: 30 MG, D1-5 EVERY 28 DAYS
     Route: 058
     Dates: start: 20060501, end: 20060505
  3. CAMPATH [Suspect]
     Dosage: 30 MG, D1-5 EVERY 28 DAYS
     Route: 058
     Dates: start: 20060530, end: 20060602
  4. CAMPATH [Suspect]
     Dosage: 30 MG, 1 DOSE (CYCLE 3)
     Route: 058
     Dates: start: 20060605, end: 20060605
  5. CAMPATH [Suspect]
     Dosage: 30 MG, D1-5 EVERY 28 DAYS
     Route: 058
     Dates: start: 20060627, end: 20060630
  6. CAMPATH [Suspect]
     Dosage: 30 MG, 1 DOSE
     Route: 058
     Dates: start: 20060703, end: 20060703
  7. CAMPATH [Suspect]
     Dosage: 30 MG, D1-5 EVERY 28 DAYS
     Route: 058
     Dates: start: 20060724, end: 20060728
  8. FLUDARA [Suspect]
     Indication: CHRONIC LYMPHOCYTIC LEUKAEMIA
     Dosage: 20 MG/M2, D1-5 EVERY 28 DAYS
     Route: 042
     Dates: start: 20060313, end: 20060317
  9. FLUDARA [Suspect]
     Dosage: 20 MG/M2, D1-5 EVERY 28 DAYS
     Route: 042
     Dates: start: 20060501, end: 20060505
  10. FLUDARA [Suspect]
     Dosage: 20 MG/M2, D1-5 EVERY 28 DAYS
     Route: 042
     Dates: start: 20060530, end: 20060602
  11. FLUDARA [Suspect]
     Dosage: 20 MG/M2, 1 DOSE (CYCLE 3)
     Route: 042
     Dates: start: 20060605, end: 20060605
  12. FLUDARA [Suspect]
     Dosage: 20 MG/M2, D1-5 EVERY 28 DAYS
     Route: 042
     Dates: start: 20060627, end: 20060630
  13. FLUDARA [Suspect]
     Dosage: 20 MG/M2, 1 DOSE (CYCLE 4)
     Route: 042
     Dates: start: 20060703, end: 20060703
  14. FLUDARA [Suspect]
     Dosage: 20 MG/M2, D1-5 EVERY 28 DAYS
     Route: 042
     Dates: start: 20060724, end: 20060728
  15. EPOETIN ALFA [Concomitant]
     Indication: ANAEMIA
     Dosage: 60000 IU, 1X/WEEK
     Route: 058
     Dates: start: 20060728
  16. EPOETIN ALFA [Concomitant]
     Dosage: 40000 IU, 1X/WEEK
     Route: 058
     Dates: start: 20060116, end: 20060728
  17. SODIUM CHLORIDE [Concomitant]
     Indication: HYPONATRAEMIA
     Dosage: 100 ML/H, CONT
     Route: 042
     Dates: start: 20060801, end: 20060801
  18. SODIUM CHLORIDE [Concomitant]
     Dosage: 200 ML/H, CONT
     Route: 042
     Dates: start: 20060801, end: 20060802
  19. SODIUM CHLORIDE [Concomitant]
     Dosage: 100 ML/H, CONT
     Route: 042
     Dates: start: 20060801, end: 20060801
  20. SODIUM CHLORIDE [Concomitant]
     Dosage: 200 ML/H, CONT
     Route: 042
     Dates: start: 20060801, end: 20060802
  21. SODIUM CHLORIDE [Concomitant]
     Dosage: 100 ML/H, CONT
     Route: 042
     Dates: start: 20060802, end: 20060804
  22. IMIPENEM [Concomitant]
     Indication: BACTERAEMIA
     Dosage: 500 MG, 2X/DAY
     Route: 042
     Dates: start: 20060801, end: 20060802
  23. AZTREONAM [Concomitant]
     Indication: BACTERAEMIA
     Dosage: 1 G, EVERY 8H
     Route: 042
     Dates: start: 20060803, end: 20060806
  24. AZTREONAM [Concomitant]
     Dosage: 1 G, EVERY 8H
     Route: 042
     Dates: start: 20060808, end: 20060814
  25. RED BLOOD CELLS [Concomitant]
     Indication: ANAEMIA
     Dosage: 2 UNITS, 1 DOSE
     Route: 042
     Dates: start: 20060802, end: 20060803
  26. RED BLOOD CELLS [Concomitant]
     Dosage: 2 UNITS, 1 DOSE
     Route: 042
     Dates: start: 20060804, end: 20060805
  27. RED BLOOD CELLS [Concomitant]
     Dosage: 1 UNIT 1 DOSE
     Route: 042
     Dates: start: 20060322, end: 20060322
  28. RED BLOOD CELLS [Concomitant]
     Dosage: 2 UNITS ONE DOSE
     Route: 042
     Dates: start: 20060403, end: 20060404
  29. RED BLOOD CELLS [Concomitant]
     Dosage: 2 UNITS ONE DOSE
     Route: 042
     Dates: start: 20060413, end: 20060413
  30. RED BLOOD CELLS [Concomitant]
     Dosage: 2 UNITS ONE DOSE
     Route: 042
     Dates: start: 20060712, end: 20060713
  31. VITAMIN CAP [Concomitant]
     Indication: SUPPLEMENTATION THERAPY
     Dosage: 1 TAB(S), 1X/DAY
     Route: 048
     Dates: start: 20051001
  32. ALLOPURINOL [Concomitant]
     Dosage: 100 MG, 1X/DAY
     Route: 048
  33. DOCUSATE CALCIUM [Concomitant]
     Dosage: 240 MG, 1X/DAY
     Route: 048
  34. FERROUS SULFATE [Concomitant]
     Dosage: 325 MG, 3X/DAY
     Route: 048
  35. FINASTERIDE [Concomitant]
     Dosage: 5 MG, 1X/DAY
     Route: 048
  36. TERAZOSIN HCL [Concomitant]
     Dosage: 4 MG, BED T.
     Route: 048
     Dates: start: 20050401
  37. FOLIC ACID [Concomitant]
     Indication: SUPPLEMENTATION THERAPY
     Dosage: 1 MG, DAILY
     Route: 048
     Dates: start: 20051001
  38. SULFAMETHOXAZOLE W/TRIMETHOPRIM [Concomitant]
     Dosage: 400/80 MG -2 TABS BID MWF
     Route: 048
     Dates: start: 20060427
  39. FAMCICLOVIR [Concomitant]
     Indication: ANTIVIRAL PROPHYLAXIS
     Dosage: 250 MG, 2X/DAY
     Route: 048
     Dates: start: 20060519
  40. OXYCODONE HCL AND ACETAMINOPHEN [Concomitant]
     Indication: PAIN
     Dosage: 1 TAB(S), 2X/DAY FOR PAIN
     Route: 048
     Dates: start: 20060522
  41. VANCOMYCIN [Concomitant]
     Indication: SEPSIS
     Dosage: 1 G, DAILY
     Route: 042
     Dates: start: 20060815, end: 20060904
  42. PREDNISONE TAB [Concomitant]
     Dosage: 10 MG, DAILY
     Route: 048
     Dates: start: 20060516
  43. SLOW-MAG [Concomitant]
     Indication: HYPOMAGNESAEMIA
     Dosage: 128 MG, DAILY
     Route: 048
     Dates: start: 20060725, end: 20060803
  44. MAGNESIUM SULFATE [Concomitant]
     Dosage: 16 MEQ, 1 DOSE
     Route: 042
     Dates: start: 20060802, end: 20060802
  45. FUROSEMIDE [Concomitant]
     Dosage: 20 MG, 1X/DAY
     Route: 042
     Dates: start: 20060802, end: 20060804
  46. FILGRASTIM [Concomitant]
     Dosage: 300 A?G, 1X/DAY
     Route: 058
     Dates: start: 20060804, end: 20060901
  47. FRESH FROZEN PLASMA [Concomitant]
     Dosage: 2 UNITS, 1 DOSE
     Route: 042
     Dates: start: 20060802, end: 20060802

REACTIONS (1)
  - SEPTIC SHOCK [None]
